FAERS Safety Report 12582130 (Version 1)
Quarter: 2016Q3

REPORT INFORMATION
  Report Type: Report from Study
  Country: US (occurrence: US)
  Receive Date: 20160722
  Receipt Date: 20160722
  Transmission Date: 20161109
  Serious: Yes (Death, Other)
  Sender: FDA-Public Use
  Company Number: US-ROCHE-1799531

PATIENT
  Age: 78 Year
  Sex: Male
  Weight: 80.5 kg

DRUGS (3)
  1. VISMODEGIB [Suspect]
     Active Substance: VISMODEGIB
     Dosage: COURSE 2, LAST TREATMENT ON 03/JUN/2011
     Route: 048
     Dates: start: 20110527
  2. VISMODEGIB [Suspect]
     Active Substance: VISMODEGIB
     Indication: PANCREATIC CARCINOMA
     Dosage: COURSE 1
     Route: 048
     Dates: start: 20110429
  3. GEMCITABINE HYDROCHLORIDE. [Suspect]
     Active Substance: GEMCITABINE HYDROCHLORIDE
     Indication: PANCREATIC CARCINOMA
     Dosage: COURSE 2, LAST TREATMENT ON 03/JUN/2011
     Route: 042
     Dates: start: 20110527

REACTIONS (3)
  - Hypophosphataemia [Unknown]
  - Death [Fatal]
  - Hyponatraemia [Unknown]

NARRATIVE: CASE EVENT DATE: 20110722
